FAERS Safety Report 8870858 (Version 1)
Quarter: 2012Q4

REPORT INFORMATION
  Report Type: 
  Country: PT (occurrence: PT)
  Receive Date: 20121026
  Receipt Date: 20121026
  Transmission Date: 20130627
  Serious: Yes (Life-Threatening, Hospitalization)
  Sender: FDA-Public Use
  Company Number: PT-B.I. PHARMACEUTICALS,INC./RIDGEFIELD-2012-EU-05350PO

PATIENT
  Sex: Male

DRUGS (2)
  1. PRADAXA [Suspect]
     Indication: ATRIAL FIBRILLATION
     Dosage: 220 mg
     Route: 048
     Dates: end: 20121021
  2. HEPARIN [Suspect]
     Indication: ATRIAL FIBRILLATION
     Dosage: 15000 U

REACTIONS (3)
  - Cardiac tamponade [Unknown]
  - Cardiac perforation [None]
  - Medical device complication [None]
